FAERS Safety Report 18182830 (Version 1)
Quarter: 2020Q3

REPORT INFORMATION
  Report Type: Spontaneous
  Country: US (occurrence: US)
  Receive Date: 20200821
  Receipt Date: 20200821
  Transmission Date: 20201103
  Serious: No
  Sender: FDA-Public Use
  Company Number: US-BAUSCH-BL-2020-022695

PATIENT
  Age: 30 Year
  Sex: Male

DRUGS (3)
  1. UCERIS [Suspect]
     Active Substance: BUDESONIDE
     Indication: PRODUCT USE IN UNAPPROVED INDICATION
  2. UCERIS [Suspect]
     Active Substance: BUDESONIDE
     Indication: RECTAL CANCER
     Route: 054
     Dates: start: 20200806
  3. UCERIS [Suspect]
     Active Substance: BUDESONIDE
     Indication: PROCTALGIA
     Route: 054
     Dates: start: 20200804, end: 20200805

REACTIONS (2)
  - Product use in unapproved indication [Unknown]
  - Device malfunction [Unknown]

NARRATIVE: CASE EVENT DATE: 202008
